FAERS Safety Report 10331790 (Version 4)
Quarter: 2015Q1

REPORT INFORMATION
  Report Type: Spontaneous
  Country: US (occurrence: US)
  Receive Date: 20140722
  Receipt Date: 20150213
  Transmission Date: 20150720
  Serious: Yes (Hospitalization, Other)
  Sender: FDA-Public Use
  Company Number: US-BAYER-2014-107894

PATIENT
  Age: 34 Year
  Sex: Female
  Weight: 68 kg

DRUGS (3)
  1. CYTOTEC [Concomitant]
     Active Substance: MISOPROSTOL
  2. MIRENA [Suspect]
     Active Substance: LEVONORGESTREL
     Indication: CONTRACEPTION
     Dosage: 20 MCG/24HR, CONT
     Route: 015
     Dates: start: 20091109, end: 20101022
  3. PERCOCET [Concomitant]
     Active Substance: ACETAMINOPHEN\OXYCODONE HYDROCHLORIDE

REACTIONS (11)
  - Genital haemorrhage [None]
  - Injury [Not Recovered/Not Resolved]
  - Device issue [None]
  - Medical device discomfort [Not Recovered/Not Resolved]
  - Uterine perforation [None]
  - Device dislocation [Not Recovered/Not Resolved]
  - Fatigue [None]
  - Mononucleosis syndrome [None]
  - Device difficult to use [None]
  - Menorrhagia [None]
  - Abdominal pain lower [Not Recovered/Not Resolved]

NARRATIVE: CASE EVENT DATE: 200911
